FAERS Safety Report 19971641 (Version 1)
Quarter: 2021Q4

REPORT INFORMATION
  Report Type: Report from Study
  Country: None (occurrence: GB)
  Receive Date: 20211020
  Receipt Date: 20211020
  Transmission Date: 20220303
  Serious: Yes (Life-Threatening, Hospitalization, Other)
  Sender: FDA-Public Use
  Company Number: GB-002147023-NVSC2021GB136069

PATIENT
  Age: 35 Year
  Sex: Male
  Weight: 98 kg

DRUGS (7)
  1. HUMIRA [Suspect]
     Active Substance: ADALIMUMAB
     Indication: Product used for unknown indication
     Route: 058
     Dates: start: 202105
  2. HYRIMOZ [Suspect]
     Active Substance: ADALIMUMAB-ADAZ
     Indication: Hidradenitis
     Dosage: 40 MG, QW
     Route: 058
     Dates: start: 20180628, end: 202012
  3. CLARITHROMYCIN [Concomitant]
     Active Substance: CLARITHROMYCIN
     Indication: Hidradenitis
     Dosage: UNK
     Route: 065
     Dates: start: 202009, end: 202011
  4. MONTELUKAST [Concomitant]
     Active Substance: MONTELUKAST SODIUM
     Indication: Asthma
     Dosage: 10 MG, QD
     Route: 065
     Dates: start: 20141218
  5. FLUTICASONE FUROATE\VILANTEROL TRIFENATATE [Concomitant]
     Active Substance: FLUTICASONE FUROATE\VILANTEROL TRIFENATATE
     Indication: Asthma
     Dosage: 1 DF (PUFF), QD
     Route: 065
     Dates: start: 20180518
  6. RIFAMPIN [Concomitant]
     Active Substance: RIFAMPIN
     Indication: Hidradenitis
     Dosage: UNK
     Route: 065
     Dates: start: 202009, end: 202011
  7. ALBUTEROL [Concomitant]
     Active Substance: ALBUTEROL
     Indication: Asthma
     Dosage: 2 DF (PUFFS), PRN
     Route: 065
     Dates: start: 20040906

REACTIONS (9)
  - Coma [Unknown]
  - Type 2 diabetes mellitus [Unknown]
  - Pulmonary embolism [Unknown]
  - Cardiac arrest [Unknown]
  - COVID-19 [Recovering/Resolving]
  - Lower respiratory tract infection [Unknown]
  - COVID-19 pneumonia [Unknown]
  - Staphylococcal bacteraemia [Unknown]
  - Hypertension [Unknown]

NARRATIVE: CASE EVENT DATE: 20210101
